FAERS Safety Report 14048932 (Version 2)
Quarter: 2018Q2

REPORT INFORMATION
  Report Type: Report from Study
  Country: US (occurrence: US)
  Receive Date: 20171005
  Receipt Date: 20180614
  Transmission Date: 20180711
  Serious: Yes (Hospitalization)
  Sender: FDA-Public Use
  Company Number: US-ASTRAZENECA-2017SE99521

PATIENT
  Age: 29470 Day
  Sex: Male
  Weight: 84.4 kg

DRUGS (10)
  1. DURVALUMAB. [Suspect]
     Active Substance: DURVALUMAB
     Indication: MESOTHELIOMA
     Dosage: FIVE CYCLE
     Route: 042
     Dates: start: 20170630
  2. DILTIAZEM. [Concomitant]
     Active Substance: DILTIAZEM
  3. PEMETREXED. [Suspect]
     Active Substance: PEMETREXED
     Indication: MESOTHELIOMA
     Dosage: 1100 MG, FOUR CYCLE
     Route: 065
     Dates: start: 20170630
  4. CARBOPLATIN. [Suspect]
     Active Substance: CARBOPLATIN
     Indication: MESOTHELIOMA
     Dosage: 567 MG, FOUR CYCLE
     Route: 065
     Dates: start: 20170630
  5. ATORVASTATIN [Concomitant]
     Active Substance: ATORVASTATIN
  6. MELOXICAM. [Concomitant]
     Active Substance: MELOXICAM
  7. TAMSULOSIN [Concomitant]
     Active Substance: TAMSULOSIN
  8. ASPIRIN. [Concomitant]
     Active Substance: ASPIRIN
  9. ACETAMINOPHEN. [Concomitant]
     Active Substance: ACETAMINOPHEN
  10. FINASTERIDE. [Concomitant]
     Active Substance: FINASTERIDE

REACTIONS (1)
  - Transient ischaemic attack [Recovered/Resolved]

NARRATIVE: CASE EVENT DATE: 20170927
